FAERS Safety Report 4690976-X (Version None)
Quarter: 2005Q2

REPORT INFORMATION
  Report Type: 
  Country: None (occurrence: None)
  Receive Date: 20050610
  Receipt Date: 20050603
  Transmission Date: 20051028
  Serious: Yes (Hospitalization)
  Sender: FDA-Public Use
  Company Number: ZONI002144

PATIENT
  Age: 56 Year
  Sex: Male

DRUGS (4)
  1. ZONISAMIDE [Suspect]
     Indication: CONVULSION PROPHYLAXIS
     Dosage: 200 MG, 2 IN 1 D, ORAL
     Route: 048
     Dates: start: 20050319, end: 20050422
  2. CALBLOCK (AZELNIDIPINE) [Suspect]
     Indication: HYPERTENSION
     Dosage: 16 MG, ORAL
     Route: 048
     Dates: start: 20050313, end: 20050422
  3. EPADEL S (ETHYL ICOSAPENTATE) [Suspect]
     Dosage: 1800 MG, ORAL
     Route: 048
     Dates: start: 20050313, end: 20050422
  4. PERSANTIN [Concomitant]

REACTIONS (7)
  - ERYTHEMA [None]
  - HEPATIC FUNCTION ABNORMAL [None]
  - MALAISE [None]
  - NAUSEA [None]
  - PIGMENTATION DISORDER [None]
  - PYREXIA [None]
  - RASH [None]
